FAERS Safety Report 8649657 (Version 3)
Quarter: 2013Q1

REPORT INFORMATION
  Report Type: Spontaneous
  Country: US (occurrence: US)
  Receive Date: 20120705
  Receipt Date: 20130125
  Transmission Date: 20140127
  Serious: Yes (Disabling)
  Sender: FDA-Public Use
  Company Number: US-BAYER-2012-065123

PATIENT
  Age: 37 Year
  Sex: Female
  Weight: 86.17 kg

DRUGS (5)
  1. YAZ [Suspect]
     Dosage: UNK
     Dates: start: 200702, end: 20080728
  2. YAZ [Suspect]
     Dosage: UNK
     Dates: start: 2007, end: 200808
  3. DIFLUCAN [Concomitant]
     Dosage: 200 MG, 1 Q DAY X 7 DAYS
  4. KETOCONAZOL [Concomitant]
     Dosage: UNK UNK, BID
     Route: 061
  5. KEFLEX [Concomitant]
     Dosage: 500 MG, TID FOR 10 DAYS

REACTIONS (8)
  - Deep vein thrombosis [None]
  - Injury [None]
  - Pain [None]
  - Deformity [None]
  - Anxiety [None]
  - Anhedonia [None]
  - Oedema peripheral [None]
  - Skin discolouration [None]
